FAERS Safety Report 23621122 (Version 1)
Quarter: 2024Q1

REPORT INFORMATION
  Report Type: Spontaneous
  Country: US (occurrence: US)
  Receive Date: 20240312
  Receipt Date: 20240312
  Transmission Date: 20240409
  Serious: No
  Sender: FDA-Public Use
  Company Number: US-RISINGPHARMA-US-2024RISSPO00056

PATIENT
  Sex: Male

DRUGS (1)
  1. PREGABALIN [Suspect]
     Active Substance: PREGABALIN
     Indication: Neuropathy peripheral
     Route: 048

REACTIONS (4)
  - Drug ineffective [Unknown]
  - Suspected product quality issue [Unknown]
  - Product substitution issue [Unknown]
  - Loss of personal independence in daily activities [Unknown]
